FAERS Safety Report 7238167-2 (Version None)
Quarter: 2011Q1

REPORT INFORMATION
  Report Type: 
  Country: None (occurrence: None)
  Receive Date: 20110119
  Receipt Date: 20110119
  Transmission Date: 20110831
  Serious: Yes (Other)
  Sender: FDA-Public Use
  Company Number: None

PATIENT
  Age: 42 Year
  Sex: Female
  Weight: 111.1313 kg

DRUGS (1)
  1. CYMBALTA [Suspect]
     Indication: DEPRESSION
     Dosage: 1 1X DAY PO
     Route: 048

REACTIONS (6)
  - PARAESTHESIA [None]
  - DRUG DEPENDENCE [None]
  - ANGER [None]
  - DIZZINESS [None]
  - INSOMNIA [None]
  - NEUROPATHY PERIPHERAL [None]
